FAERS Safety Report 8360790-2 (Version None)
Quarter: 2012Q2

REPORT INFORMATION
  Report Type: 
  Country: None (occurrence: None)
  Receive Date: 20120515
  Receipt Date: 20120508
  Transmission Date: 20120825
  Serious: Yes (Hospitalization, Congenital Anomaly, Other)
  Sender: FDA-Public Use
  Company Number: US-PFIZER INC-2012113334

PATIENT
  Sex: Male
  Weight: 2 kg

DRUGS (1)
  1. ZOLOFT [Suspect]
     Dosage: UNK
     Route: 064

REACTIONS (14)
  - NEONATAL RESPIRATORY DISTRESS SYNDROME [None]
  - CEREBRAL CYST [None]
  - THROMBOCYTOPENIA NEONATAL [None]
  - ATRIAL SEPTAL DEFECT [None]
  - BRONCHOPULMONARY DYSPLASIA [None]
  - ATELECTASIS NEONATAL [None]
  - JAUNDICE NEONATAL [None]
  - CARDIOMEGALY [None]
  - MATERNAL EXPOSURE TIMING UNSPECIFIED [None]
  - PREMATURE BABY [None]
  - GLUCOSE-6-PHOSPHATE DEHYDROGENASE DEFICIENCY [None]
  - CONGENITAL PULMONARY HYPERTENSION [None]
  - STAPHYLOCOCCAL INFECTION [None]
  - NEONATAL HYPOTENSION [None]
